FAERS Safety Report 7462209-2 (Version None)
Quarter: 2011Q2

REPORT INFORMATION
  Report Type: 
  Country: None (occurrence: None)
  Receive Date: 20110506
  Receipt Date: 20110504
  Transmission Date: 20111010
  Serious: Yes (Hospitalization, Disabling)
  Sender: FDA-Public Use
  Company Number: DE-SANOFI-AVENTIS-2011SA023842

PATIENT
  Age: 59 Year
  Sex: Male
  Weight: 105 kg

DRUGS (9)
  1. NEBIVOLOL HCL [Concomitant]
     Indication: HYPERTENSION
     Route: 048
  2. MAGNESIUM HYDROGEN ASPARTATE [Concomitant]
     Route: 048
  3. NOVODIGAL [Concomitant]
     Indication: ATRIAL FIBRILLATION
     Route: 048
  4. KARVEA [Concomitant]
     Indication: HYPERTENSION
     Route: 048
  5. ATORVASTATIN [Concomitant]
     Route: 048
  6. BUDESONIDE W/FORMOTEROL FUMARATE [Concomitant]
     Indication: COUGH
     Route: 055
  7. MARCUMAR [Concomitant]
     Route: 065
  8. HYDROCHLOROTHIAZIDE [Concomitant]
     Indication: HYPERTENSION
     Dosage: DOSAGE: 1/2-0-0
     Route: 048
  9. MULTAQ [Suspect]
     Route: 048
     Dates: start: 20100901, end: 20110404

REACTIONS (4)
  - ALVEOLITIS [None]
  - COUGH [None]
  - HAEMOPTYSIS [None]
  - DYSPNOEA EXERTIONAL [None]
